FAERS Safety Report 7971515-4 (Version None)
Quarter: 2011Q4

REPORT INFORMATION
  Report Type: 
  Country: None (occurrence: None)
  Receive Date: 20111212
  Receipt Date: 20111129
  Transmission Date: 20120403
  Serious: Yes (Other)
  Sender: FDA-Public Use
  Company Number: CA-ELI_LILLY_AND_COMPANY-CA201111008599

PATIENT
  Sex: Male

DRUGS (7)
  1. ATIVAN [Concomitant]
  2. ZOPICLONE [Concomitant]
  3. RISPERIDONE [Concomitant]
  4. ZYPREXA [Suspect]
     Dosage: 30 MG, QD
  5. ZYPREXA [Suspect]
     Dosage: 20 MG, EACH EVENING
     Dates: start: 20070510
  6. CLONAZEPAM [Concomitant]
  7. QUETIAPINE [Concomitant]

REACTIONS (4)
  - DIABETIC KETOACIDOSIS [None]
  - OVERDOSE [None]
  - DIABETES MELLITUS [None]
  - BLOOD CHOLESTEROL INCREASED [None]
